FAERS Safety Report 20445573 (Version 2)
Quarter: 2022Q1

REPORT INFORMATION
  Report Type: Spontaneous
  Country: AR (occurrence: AR)
  Receive Date: 20220208
  Receipt Date: 20220223
  Transmission Date: 20220424
  Serious: Yes (Other)
  Sender: FDA-Public Use
  Company Number: AR-002147023-NVSC2022AR020877

PATIENT
  Age: 34 Year
  Sex: Female

DRUGS (1)
  1. LUCENTIS [Suspect]
     Active Substance: RANIBIZUMAB
     Indication: Myopic traction maculopathy
     Dosage: UNK, (1 OF 10 MG/ML)
     Route: 065
     Dates: start: 202105, end: 202106

REACTIONS (2)
  - Macular hole [Not Recovered/Not Resolved]
  - Product temperature excursion issue [Unknown]

NARRATIVE: CASE EVENT DATE: 20210501
